FAERS Safety Report 7563642-0 (Version None)
Quarter: 2011Q2

REPORT INFORMATION
  Report Type: 
  Country: None (occurrence: None)
  Receive Date: 20110622
  Receipt Date: 20110608
  Transmission Date: 20111010
  Serious: Yes (Other)
  Sender: FDA-Public Use
  Company Number: PL-ROCHE-782087

PATIENT
  Sex: Male

DRUGS (1)
  1. INTERFERON ALFA [Suspect]
     Indication: HEPATITIS C
     Dosage: DRUG NAME: INTERFERON (NOS)
     Route: 065

REACTIONS (1)
  - HEPATITIS C [None]
